FAERS Safety Report 5820159-9 (Version None)
Quarter: 2008Q3

REPORT INFORMATION
  Report Type: 
  Country: None (occurrence: None)
  Receive Date: 20080724
  Receipt Date: 20080715
  Transmission Date: 20090109
  Serious: Yes (Hospitalization)
  Sender: FDA-Public Use
  Company Number: PHHY2008DE14204

PATIENT
  Sex: Female
  Weight: 52 kg

DRUGS (4)
  1. ZOMETA [Suspect]
     Indication: METASTASES TO BONE
     Dosage: 4 MG EVERY 4 WEEKS
     Route: 042
     Dates: start: 20050927, end: 20060914
  2. FEMARA [Suspect]
     Indication: BREAST CANCER
     Dosage: 2.5 MG/DAY
     Route: 048
     Dates: start: 20040420
  3. VIANI [Concomitant]
     Dosage: BID
     Dates: start: 20000501
  4. SPIRIVA [Concomitant]
     Dosage: DAILY
     Dates: start: 20000501

REACTIONS (1)
  - OSTEONECROSIS [None]
